FAERS Safety Report 23065008 (Version 1)
Quarter: 2023Q4

REPORT INFORMATION
  Report Type: Spontaneous
  Country: US (occurrence: None)
  Receive Date: 20231013
  Receipt Date: 20231013
  Transmission Date: 20240110
  Serious: Yes (Other)
  Sender: FDA-Public Use
  Company Number: None

PATIENT
  Age: 77 Year
  Sex: Female

DRUGS (2)
  1. DEVICE [Suspect]
     Active Substance: DEVICE
     Dosage: OTHER QUANTITY : AS DIRECTED;?FREQUENCY : DAILY;?
  2. TYMLOS [Suspect]
     Active Substance: ABALOPARATIDE

REACTIONS (1)
  - Sinusitis [None]
